FAERS Safety Report 15075429 (Version 2)
Quarter: 2023Q4

REPORT INFORMATION
  Report Type: Spontaneous
  Country: US (occurrence: US)
  Receive Date: 20180627
  Receipt Date: 20231128
  Transmission Date: 20240110
  Serious: No
  Sender: FDA-Public Use
  Company Number: US-SAOL THERAPEUTICS-2018SAO00632

PATIENT
  Age: 53 Year
  Sex: Male
  Weight: 68.934 kg

DRUGS (1)
  1. BACLOFEN [Suspect]
     Active Substance: BACLOFEN
     Indication: Muscle spasms
     Route: 037

REACTIONS (4)
  - Therapy non-responder [Unknown]
  - Gait disturbance [Unknown]
  - Muscle spasms [Unknown]
  - Pollakiuria [Not Recovered/Not Resolved]
